FAERS Safety Report 8136229-9 (Version None)
Quarter: 2012Q1

REPORT INFORMATION
  Report Type: 
  Country: None (occurrence: None)
  Receive Date: 20120210
  Receipt Date: 20120125
  Transmission Date: 20120608
  Serious: Yes (Other)
  Sender: FDA-Public Use
  Company Number: FK201200206

PATIENT
  Sex: Female

DRUGS (3)
  1. FLUOROURACIL [Suspect]
     Indication: BREAST CANCER
     Dosage: 500 MG/M2
  2. EPIRUBICIN [Suspect]
     Indication: BREAST CANCER
     Dosage: 100 MG/M2
  3. CYCLOPHOSPHAMIDE [Suspect]
     Indication: BREAST CANCER
     Dosage: 500 MG/ML

REACTIONS (6)
  - AMENORRHOEA [None]
  - ENDOMETRIAL HYPERPLASIA [None]
  - VAGINAL HAEMORRHAGE [None]
  - ARTHRALGIA [None]
  - HOT FLUSH [None]
  - OVARIAN FAILURE [None]
